FAERS Safety Report 6955081-8 (Version None)
Quarter: 2010Q3

REPORT INFORMATION
  Report Type: 
  Country: None (occurrence: None)
  Receive Date: 20100830
  Receipt Date: 20100817
  Transmission Date: 20110219
  Serious: Yes (Hospitalization, Other)
  Sender: FDA-Public Use
  Company Number: JP-NOVOPROD-311091

PATIENT
  Age: 74 Year
  Sex: Male
  Weight: 50 kg

DRUGS (9)
  1. NOVORAPID CHU FLEXPEN [Suspect]
     Indication: TYPE 2 DIABETES MELLITUS
     Dosage: 8 IU, QD
     Route: 058
     Dates: start: 20080701, end: 20081002
  2. NOVORAPID CHU FLEXPEN [Suspect]
     Dosage: 14 IU, QD
     Dates: start: 20081002, end: 20081003
  3. AMARYL [Concomitant]
     Indication: TYPE 2 DIABETES MELLITUS
     Dosage: 3 MG, QD
     Route: 048
  4. ASCORBIC ACID [Concomitant]
     Indication: COLON CANCER RECURRENT
     Dosage: 12.5-100G
     Route: 042
     Dates: start: 20080812
  5. DONASHIN [Concomitant]
     Indication: HYPERTENSION
     Dosage: 2 MG, QD
     Route: 048
  6. LUPRAC [Concomitant]
     Indication: COLON CANCER RECURRENT
     Dosage: 8 MG, QD
     Route: 048
  7. ATELEC [Concomitant]
     Indication: HYPERTENSION
     Dosage: 20 MG, QD
     Route: 048
  8. TICLOPIDINE HCL [Concomitant]
     Indication: HYPERTENSION
     Dosage: 200 MG, QD
     Route: 048
  9. SELBEX [Concomitant]
     Indication: COLON CANCER RECURRENT
     Dosage: 2 G, QD
     Route: 048

REACTIONS (4)
  - BLOOD GLUCOSE INCREASED [None]
  - FACE OEDEMA [None]
  - HYPOGLYCAEMIC UNCONSCIOUSNESS [None]
  - MALAISE [None]
